FAERS Safety Report 14728479 (Version 1)
Quarter: 2018Q2

REPORT INFORMATION
  Report Type: Spontaneous
  Country: PL (occurrence: PL)
  Receive Date: 20180406
  Receipt Date: 20180406
  Transmission Date: 20180711
  Serious: Yes (Other)
  Sender: FDA-Public Use
  Company Number: PL-MYLANLABS-2018M1021142

PATIENT
  Age: 36 Year
  Sex: Male

DRUGS (1)
  1. LIPANTHYL 200M [Suspect]
     Active Substance: FENOFIBRATE
     Indication: BLOOD TRIGLYCERIDES INCREASED
     Dosage: 200 MG, QD
     Dates: start: 201710

REACTIONS (2)
  - Diarrhoea [Unknown]
  - Myalgia [Unknown]
